FAERS Safety Report 20191733 (Version 2)
Quarter: 2022Q1

REPORT INFORMATION
  Report Type: Spontaneous
  Country: IT (occurrence: IT)
  Receive Date: 20211216
  Receipt Date: 20220104
  Transmission Date: 20220424
  Serious: Yes (Other)
  Sender: FDA-Public Use
  Company Number: IT-Accord-235132

PATIENT
  Age: 22 Year
  Sex: Female

DRUGS (5)
  1. AMLODIPINE [Suspect]
     Active Substance: AMLODIPINE BESYLATE
     Indication: Hypertension
     Dosage: 5 MG/DAY
  2. METHYLPREDNISOLONE [Concomitant]
     Active Substance: METHYLPREDNISOLONE
     Dosage: 1 MG/KG/DAY
  3. FUROSEMIDE [Concomitant]
     Active Substance: FUROSEMIDE
     Indication: Hypertension
  4. ATENOLOL [Concomitant]
     Active Substance: ATENOLOL
     Indication: Hypertension
  5. ECULIZUMAB [Concomitant]
     Active Substance: ECULIZUMAB
     Dosage: 1200 MG

REACTIONS (4)
  - Peripheral swelling [Unknown]
  - Retinal detachment [Recovered/Resolved]
  - Drug intolerance [Unknown]
  - Hypertensive crisis [Unknown]
